FAERS Safety Report 8904721 (Version 1)
Quarter: 2012Q4

REPORT INFORMATION
  Report Type: 
  Country: AU (occurrence: AU)
  Receive Date: 20121112
  Receipt Date: 20121112
  Transmission Date: 20130627
  Serious: Yes (Life-Threatening)
  Sender: FDA-Public Use
  Company Number: AU-ASTRAZENECA-2012SE85132

PATIENT
  Sex: Female

DRUGS (5)
  1. PROPOFOL [Suspect]
     Indication: SENSORY DISTURBANCE
     Route: 042
     Dates: start: 20121009
  2. FENTANYL [Suspect]
     Indication: SENSORY DISTURBANCE
     Route: 042
     Dates: start: 20121009
  3. MORPHINE [Suspect]
     Indication: SENSORY DISTURBANCE
     Route: 042
     Dates: start: 20121009
  4. PANADOL [Suspect]
     Indication: SENSORY DISTURBANCE
     Route: 042
     Dates: start: 20121009
  5. DEXAMETHASONE [Suspect]
     Indication: SENSORY DISTURBANCE
     Route: 042
     Dates: start: 20121009

REACTIONS (6)
  - Respiratory distress [Recovered/Resolved]
  - Dyspnoea [Recovered/Resolved]
  - Stridor [Recovered/Resolved]
  - Rash macular [Recovered/Resolved]
  - Swelling face [Recovered/Resolved]
  - Eye movement disorder [Recovered/Resolved]
